FAERS Safety Report 17275240 (Version 5)
Quarter: 2021Q1

REPORT INFORMATION
  Report Type: Report from Study
  Country: None (occurrence: CA)
  Receive Date: 20200116
  Receipt Date: 20210126
  Transmission Date: 20210419
  Serious: Yes (Hospitalization, Other)
  Sender: FDA-Public Use
  Company Number: CA-ABBVIE-20K-028-3232112-00

PATIENT
  Sex: Female

DRUGS (1)
  1. HUMIRA [Suspect]
     Active Substance: ADALIMUMAB
     Indication: CROHN^S DISEASE
     Route: 058
     Dates: start: 20080416

REACTIONS (34)
  - Diarrhoea [Not Recovered/Not Resolved]
  - Periorbital oedema [Recovering/Resolving]
  - Cholelithiasis [Unknown]
  - Intestinal stenosis [Not Recovered/Not Resolved]
  - Intestinal fistula [Not Recovered/Not Resolved]
  - Enteritis [Unknown]
  - Bile acid malabsorption [Unknown]
  - Biliary colic [Unknown]
  - Abdominal discomfort [Unknown]
  - Nausea [Not Recovered/Not Resolved]
  - Hypoalbuminaemia [Unknown]
  - Intestinal stenosis [Unknown]
  - Swelling face [Unknown]
  - Haematochezia [Not Recovered/Not Resolved]
  - Abdominal distension [Not Recovered/Not Resolved]
  - Therapeutic product effect decreased [Not Recovered/Not Resolved]
  - Malnutrition [Unknown]
  - Rectal polyp [Unknown]
  - Cholecystitis acute [Unknown]
  - Flatulence [Unknown]
  - Abdominal pain upper [Not Recovered/Not Resolved]
  - Pain [Not Recovered/Not Resolved]
  - Small intestinal obstruction [Unknown]
  - Intestinal anastomosis complication [Unknown]
  - Weight decreased [Unknown]
  - Faecal calprotectin increased [Unknown]
  - Vomiting [Not Recovered/Not Resolved]
  - Rectal haemorrhage [Unknown]
  - Oedema peripheral [Unknown]
  - Crohn^s disease [Not Recovered/Not Resolved]
  - Frequent bowel movements [Unknown]
  - Gastrointestinal wall thickening [Unknown]
  - Constipation [Unknown]
  - Hepatic steatosis [Unknown]

NARRATIVE: CASE EVENT DATE: 2019
